FAERS Safety Report 19603084 (Version 3)
Quarter: 2021Q4

REPORT INFORMATION
  Report Type: Spontaneous
  Country: US (occurrence: US)
  Receive Date: 20210723
  Receipt Date: 20211029
  Transmission Date: 20220303
  Serious: No
  Sender: FDA-Public Use
  Company Number: US-BRISTOL-MYERS SQUIBB COMPANY-BMS-2021-072316

PATIENT
  Age: 59 Year
  Sex: Female
  Weight: 52.15 kg

DRUGS (1)
  1. ORENCIA [Suspect]
     Active Substance: ABATACEPT
     Indication: Psoriatic arthropathy
     Dosage: 125 MILLIGRAM, QWK
     Route: 058
     Dates: start: 2021

REACTIONS (4)
  - Injection site pain [Unknown]
  - Localised infection [Unknown]
  - Device malfunction [Unknown]
  - Incorrect dose administered by device [Unknown]

NARRATIVE: CASE EVENT DATE: 20210721
